FAERS Safety Report 15747226 (Version 1)
Quarter: 2018Q4

REPORT INFORMATION
  Report Type: Spontaneous
  Country: US (occurrence: US)
  Receive Date: 20181220
  Receipt Date: 20181220
  Transmission Date: 20190205
  Serious: No
  Sender: FDA-Public Use
  Company Number: US-AVADEL SPECIALTY PHARMACEUTICALS, LLC-2018AVA00496

PATIENT
  Age: 86 Year
  Sex: Male
  Weight: 97.96 kg

DRUGS (5)
  1. PRESERVISION [Concomitant]
     Active Substance: MINERALS\VITAMINS
  2. FISH OIL [Concomitant]
     Active Substance: FISH OIL
  3. NOCTIVA [Suspect]
     Active Substance: DESMOPRESSIN ACETATE
     Indication: NOCTURIA
     Dosage: 0.83 ?G, 1X/DAY 30 MINUTES PRIOR TO BEDTIME
     Route: 045
     Dates: start: 20181113
  4. CENTRUM ADULT [Concomitant]
  5. ACETAMINOPHEN. [Concomitant]
     Active Substance: ACETAMINOPHEN

REACTIONS (4)
  - Abdominal discomfort [Not Recovered/Not Resolved]
  - Device malfunction [Unknown]
  - Drug ineffective [Not Recovered/Not Resolved]
  - Product preparation issue [Recovered/Resolved]

NARRATIVE: CASE EVENT DATE: 201811
